FAERS Safety Report 12115755 (Version 3)
Quarter: 2017Q1

REPORT INFORMATION
  Report Type: Spontaneous
  Country: US (occurrence: US)
  Receive Date: 20160225
  Receipt Date: 20170329
  Transmission Date: 20170428
  Serious: Yes (Hospitalization, Other)
  Sender: FDA-Public Use
  Company Number: US-PFIZER INC-2016106939

PATIENT
  Age: 71 Year
  Sex: Male
  Weight: 102 kg

DRUGS (13)
  1. TIKOSYN [Suspect]
     Active Substance: DOFETILIDE
     Dosage: 250 UG, 2X/DAY
     Route: 048
     Dates: start: 201511
  2. XARELTO [Concomitant]
     Active Substance: RIVAROXABAN
     Indication: THROMBOSIS PROPHYLAXIS
     Dosage: 20 MG, UNK
     Dates: start: 20151015
  3. CARDIZEM [Concomitant]
     Active Substance: DILTIAZEM HYDROCHLORIDE
     Indication: HEART RATE
  4. TIKOSYN [Suspect]
     Active Substance: DOFETILIDE
     Dosage: 250 UG, 2X/DAY
     Dates: start: 20151202
  5. METOPROLOL. [Concomitant]
     Active Substance: METOPROLOL
     Indication: HEART RATE
     Dosage: 100 MG, 2X/DAY
     Route: 048
  6. XARELTO [Concomitant]
     Active Substance: RIVAROXABAN
     Dosage: 40 MG, 1X/DAY
     Route: 048
  7. SYNTHROID [Concomitant]
     Active Substance: LEVOTHYROXINE SODIUM
     Indication: HYPOTHYROIDISM
     Dosage: 88 UG, 1X/DAY
     Route: 048
  8. TIKOSYN [Suspect]
     Active Substance: DOFETILIDE
     Indication: ATRIAL FIBRILLATION
     Dosage: 500 UG, UNK
     Dates: start: 20151130
  9. CARDIZEM [Concomitant]
     Active Substance: DILTIAZEM HYDROCHLORIDE
     Indication: ATRIAL FIBRILLATION
     Dosage: 60 MG, 3X/DAY
     Route: 048
     Dates: start: 2011
  10. CRESTOR [Concomitant]
     Active Substance: ROSUVASTATIN CALCIUM
     Indication: CARDIAC DISORDER
     Dosage: 10 MG, 1X/DAY
     Route: 048
  11. METOPROLOL. [Concomitant]
     Active Substance: METOPROLOL
     Indication: ATRIAL FIBRILLATION
     Dosage: 50 MG, 2X/DAY
     Dates: start: 2011
  12. PANTOPRAZOLE [Concomitant]
     Active Substance: PANTOPRAZOLE SODIUM
     Indication: GASTROOESOPHAGEAL REFLUX DISEASE
     Dosage: 40 MG, 1X/DAY
     Route: 048
     Dates: start: 1995
  13. DELZICOL [Concomitant]
     Active Substance: MESALAMINE
     Indication: COLITIS MICROSCOPIC
     Dosage: 400 MG, 1X/DAY
     Route: 048

REACTIONS (2)
  - Electrocardiogram QT prolonged [Unknown]
  - Drug effect incomplete [Not Recovered/Not Resolved]

NARRATIVE: CASE EVENT DATE: 201511
